FAERS Safety Report 7356558-6 (Version None)
Quarter: 2011Q1

REPORT INFORMATION
  Report Type: 
  Country: None (occurrence: None)
  Receive Date: 20110316
  Receipt Date: 20110302
  Transmission Date: 20110831
  Serious: Yes (Other)
  Sender: FDA-Public Use
  Company Number: PHHY2010US79339

PATIENT
  Sex: Female

DRUGS (1)
  1. FEMARA [Suspect]
     Dosage: 2.5 MG, QD
     Dates: start: 20091231, end: 20101001

REACTIONS (5)
  - HYDROPNEUMOTHORAX [None]
  - ATELECTASIS [None]
  - PELVIC MASS [None]
  - PLEURAL EFFUSION [None]
  - ENDOMETRIAL CANCER [None]
